FAERS Safety Report 4270454-2 (Version None)
Quarter: 2004Q1

REPORT INFORMATION
  Report Type: 
  Country: None (occurrence: None)
  Receive Date: 20040114
  Receipt Date: 20031111
  Transmission Date: 20041129
  Serious: Yes (Other)
  Sender: FDA-Public Use
  Company Number: GB-GLAXOSMITHKLINE-B0314587A

PATIENT
  Age: 48 Year
  Sex: Male
  Weight: 81.4 kg

DRUGS (1)
  1. MALARONE [Suspect]
     Route: 048

REACTIONS (4)
  - DIZZINESS [None]
  - FULL BLOOD COUNT DECREASED [None]
  - NEUTROPENIA [None]
  - THROMBOCYTOPENIA [None]
